FAERS Safety Report 16026168 (Version 1)
Quarter: 2019Q1

REPORT INFORMATION
  Report Type: Spontaneous
  Country: US (occurrence: US)
  Receive Date: 20190302
  Receipt Date: 20190302
  Transmission Date: 20190418
  Serious: No
  Sender: FDA-Public Use
  Company Number: US-NOVOPROD-612432

PATIENT
  Age: 84 Year
  Sex: Female

DRUGS (5)
  1. VICTOZA [Suspect]
     Active Substance: LIRAGLUTIDE
     Dosage: 0.6 MG, QD
     Route: 058
     Dates: start: 20180719
  2. VICTOZA [Suspect]
     Active Substance: LIRAGLUTIDE
     Dosage: PARTIAL DOSE + EXTRA 1.2 MG DOSE
     Route: 058
     Dates: start: 20180717, end: 20180717
  3. VICTOZA [Suspect]
     Active Substance: LIRAGLUTIDE
     Indication: TYPE 2 DIABETES MELLITUS
     Dosage: 0.6 MG, QD
     Route: 058
     Dates: start: 20180601, end: 20180625
  4. METFORMIN [Concomitant]
     Active Substance: METFORMIN HYDROCHLORIDE
     Indication: TYPE 2 DIABETES MELLITUS
     Dosage: UNK
     Route: 048
  5. VICTOZA [Suspect]
     Active Substance: LIRAGLUTIDE
     Dosage: 1.2 MG, QD
     Route: 058
     Dates: start: 20180626, end: 20180716

REACTIONS (12)
  - Decreased appetite [Recovered/Resolved]
  - Drug titration error [Recovered/Resolved]
  - Headache [Recovered/Resolved]
  - Intentional dose omission [Recovered/Resolved]
  - Extrasystoles [Recovering/Resolving]
  - Dysgeusia [Recovered/Resolved]
  - Decreased appetite [Recovering/Resolving]
  - Extra dose administered [Recovered/Resolved]
  - Product complaint [Recovered/Resolved]
  - Intentional product use issue [Unknown]
  - Dysgeusia [Recovered/Resolved]
  - Headache [Recovered/Resolved]

NARRATIVE: CASE EVENT DATE: 20180608
